FAERS Safety Report 15301737 (Version 1)
Quarter: 2018Q4

REPORT INFORMATION
  Report Type: Spontaneous
  Country: ES (occurrence: ES)
  Receive Date: 20180821
  Receipt Date: 20180821
  Transmission Date: 20190204
  Serious: Yes (Hospitalization)
  Sender: FDA-Public Use
  Company Number: PHHY2018ES078099

PATIENT
  Age: 32 Year
  Sex: Female

DRUGS (3)
  1. AMOXICILLIN+CLAVULANIC ACID [Suspect]
     Active Substance: AMOXICILLIN\CLAVULANIC ACID
     Indication: CELLULITIS
     Dosage: UNK (|| DOSIS UNIDAD FRECUENCIA: 1800 MG-MILIGRAMOS || DOSIS POR TOMA: 600 MG-MILIGRAMOS || N? TOMA)
     Route: 042
     Dates: start: 20170206, end: 20170207
  2. BENCILPENICILINA SODICA [Suspect]
     Active Substance: PENICILLIN G SODIUM
     Indication: CELLULITIS
     Dosage: 4 MIU, Q6H (|| DOSIS UNIDAD FRECUENCIA: 16 MUI-MILLON(ES) DE UNIDADES INTERNACIONALES || DOSIS POR)
     Route: 042
     Dates: start: 20170207, end: 20170208
  3. CLINDAMICINA FOSFATO [Concomitant]
     Active Substance: CLINDAMYCIN PHOSPHATE
     Indication: CELLULITIS
     Dosage: 600 MG, Q8H (|| DOSIS UNIDAD FRECUENCIA: 1800 MG-MILIGRAMOS || DOSIS POR TOMA: 600 MG-MILIGRAMOS ||)
     Route: 042
     Dates: start: 20170208, end: 20170215

REACTIONS (1)
  - Pancytopenia [Recovered/Resolved]

NARRATIVE: CASE EVENT DATE: 20170208
